FAERS Safety Report 12789630 (Version 1)
Quarter: 2016Q3

REPORT INFORMATION
  Report Type: Spontaneous
  Country: BR (occurrence: BR)
  Receive Date: 20160928
  Receipt Date: 20160928
  Transmission Date: 20161109
  Serious: Yes (Other)
  Sender: FDA-Public Use
  Company Number: BR-ABBVIE-16P-020-1739852-00

PATIENT
  Sex: Female

DRUGS (7)
  1. DEPAKOTE [Suspect]
     Active Substance: DIVALPROEX SODIUM
     Indication: AFFECTIVE DISORDER
     Dosage: DAILY DOSE: 250 MG; AT NIGHT
     Route: 065
     Dates: start: 2008, end: 2010
  2. DEPAKOTE [Suspect]
     Active Substance: DIVALPROEX SODIUM
     Dosage: DAILY DOSE: 500 MG; MORNING/NIGHT
     Route: 065
     Dates: start: 2010, end: 2011
  3. OLCADIL [Suspect]
     Active Substance: CLOXAZOLAM
     Indication: PRODUCT USED FOR UNKNOWN INDICATION
     Dosage: DAILY DOSE: 3 MG; HALF TABLET IN THE MORNING AND ONE TABLET AT NIGHT
     Route: 048
     Dates: start: 2012
  4. DEPAKOTE ER [Suspect]
     Active Substance: DIVALPROEX SODIUM
     Dosage: DAILY DOSE: 500 MG; AT NIGHT
     Route: 048
     Dates: start: 201606
  5. FLUOXETINE [Concomitant]
     Active Substance: FLUOXETINE HYDROCHLORIDE
     Indication: PRODUCT USED FOR UNKNOWN INDICATION
     Dosage: DAILY DOSE: 20 MG; AT NIGHT
     Route: 048
     Dates: start: 2010, end: 2012
  6. DEPAKOTE [Suspect]
     Active Substance: DIVALPROEX SODIUM
     Route: 065
  7. DEPAKOTE ER [Suspect]
     Active Substance: DIVALPROEX SODIUM
     Indication: AFFECTIVE DISORDER
     Dosage: DAILY DOSE: 250 MG; AT NIGHT
     Route: 048

REACTIONS (8)
  - Foetal death [Unknown]
  - Anxiety [Unknown]
  - Nervousness [Unknown]
  - Maternal exposure during pregnancy [Unknown]
  - Fear [Unknown]
  - Abortion [Unknown]
  - Insomnia [Unknown]
  - Panic reaction [Unknown]

NARRATIVE: CASE EVENT DATE: 2010
